FAERS Safety Report 6343407-8 (Version None)
Quarter: 2009Q3

REPORT INFORMATION
  Report Type: 
  Country: None (occurrence: None)
  Receive Date: 20090908
  Receipt Date: 20090902
  Transmission Date: 20100115
  Serious: Yes (Life-Threatening, Other)
  Sender: FDA-Public Use
  Company Number: PHHY2009JP37325

PATIENT
  Age: 62 Year
  Sex: Male
  Weight: 57 kg

DRUGS (17)
  1. ZOMETA [Suspect]
     Indication: PROSTATE CANCER
     Dosage: 4 MG EVERY THREE WEEKS
     Route: 042
     Dates: start: 20050911
  2. VOLTAREN-XR [Concomitant]
     Route: 048
  3. TAXOTERE [Concomitant]
     Route: 042
  4. MAINTATE [Concomitant]
     Dosage: 5 MG, UNK
     Route: 048
  5. ACINON [Concomitant]
     Dosage: 150 MG, UNK
     Route: 048
  6. URALYT [Concomitant]
     Route: 048
  7. GASCON [Concomitant]
     Dosage: 40 MG, UNK
     Route: 048
  8. DEPAS [Concomitant]
     Dosage: 0.4 MG, UNK
     Route: 048
  9. ETHINYLOESTRADIOL [Concomitant]
     Dosage: 0.5 MG, UNK
     Route: 048
  10. MAGLAX [Concomitant]
     Dosage: 250 MG, UNK
     Route: 048
  11. URIEF [Concomitant]
     Dosage: 4 MG, UNK
     Route: 048
  12. LASIX [Concomitant]
     Dosage: 20 MG, UNK
     Route: 048
  13. RINDERON [Concomitant]
     Dosage: 0.5 MG, UNK
  14. LUPRAC [Concomitant]
     Dosage: 4 MG, UNK
  15. OPSO DAINIPPON [Concomitant]
  16. OXYCONTIN [Concomitant]
     Route: 048
  17. DRUG THERAPY NOS [Concomitant]

REACTIONS (2)
  - ORAL PAIN [None]
  - OSTEONECROSIS [None]
